FAERS Safety Report 9774138 (Version 1)
Quarter: 2013Q4

REPORT INFORMATION
  Report Type: Report from Study
  Country: US (occurrence: US)
  Receive Date: 20131220
  Receipt Date: 20131220
  Transmission Date: 20140711
  Serious: Yes (Death)
  Sender: FDA-Public Use
  Company Number: US-ROCHE-1313060

PATIENT
  Sex: Female
  Weight: 80.81 kg

DRUGS (11)
  1. AVASTIN [Suspect]
     Indication: FALLOPIAN TUBE CANCER
     Route: 042
     Dates: start: 20110927
  2. NEUPOGEN [Concomitant]
     Dosage: 480 MCG FOR 3 DAYS
     Route: 058
     Dates: start: 20110927, end: 20110930
  3. GEMCITABINE [Concomitant]
     Route: 065
     Dates: start: 20110927
  4. CELEXA (UNITED STATES) [Concomitant]
     Route: 048
  5. CLARITIN [Concomitant]
     Route: 048
  6. COUMADIN [Concomitant]
     Route: 048
     Dates: start: 20110810, end: 20111008
  7. ARIXTRA [Concomitant]
     Route: 058
     Dates: start: 20111018
  8. EMLA [Concomitant]
     Dosage: 1 TOPICAL APPLICATION
     Route: 065
  9. OXYCONTIN [Concomitant]
     Route: 048
  10. VITAMIN D3 [Concomitant]
     Dosage: 1000 UNITS
     Route: 048
  11. VITAMIN E [Concomitant]
     Dosage: 400 UNITS
     Route: 048

REACTIONS (5)
  - Disease progression [Fatal]
  - Neutropenia [Unknown]
  - Thrombocytopenia [Unknown]
  - Pyrexia [Unknown]
  - Off label use [Unknown]
